FAERS Safety Report 8413030-X (Version None)
Quarter: 2012Q2

REPORT INFORMATION
  Report Type: 
  Country: None (occurrence: None)
  Receive Date: 20120605
  Receipt Date: 20120529
  Transmission Date: 20120825
  Serious: No
  Sender: FDA-Public Use
  Company Number: US-AMGEN-USASP2012033548

PATIENT
  Age: 34 Year
  Sex: Female

DRUGS (10)
  1. PREDNISONE [Concomitant]
  2. FOLIC ACID [Concomitant]
  3. CYMBALTA [Concomitant]
  4. ENBREL [Suspect]
     Indication: RHEUMATOID ARTHRITIS
     Dosage: 50 MG, QWK
     Dates: start: 20120501
  5. TIZANIDINE [Concomitant]
  6. METHOTREXATE [Concomitant]
  7. ALENDRONATE SODIUM [Concomitant]
  8. SUMATRIPTAN [Concomitant]
  9. ALPRAZOLAM [Concomitant]
  10. OXYCONTIN [Concomitant]

REACTIONS (2)
  - HYPERTENSION [None]
  - MIGRAINE [None]
